FAERS Safety Report 22190795 (Version 2)
Quarter: 2023Q2

REPORT INFORMATION
  Report Type: Spontaneous
  Country: US (occurrence: US)
  Receive Date: 20230410
  Receipt Date: 20230530
  Transmission Date: 20230722
  Serious: Yes (Hospitalization)
  Sender: FDA-Public Use
  Company Number: US-BAUSCH-BL-2023-005716

PATIENT
  Age: 58 Year
  Sex: Female

DRUGS (1)
  1. XIFAXAN [Suspect]
     Active Substance: RIFAXIMIN
     Indication: Product used for unknown indication
     Route: 048
     Dates: start: 201907

REACTIONS (1)
  - Transient global amnesia [Recovered/Resolved]

NARRATIVE: CASE EVENT DATE: 20190701
